FAERS Safety Report 5764559-4 (Version None)
Quarter: 2008Q2

REPORT INFORMATION
  Report Type: 
  Country: None (occurrence: None)
  Receive Date: 20080610
  Receipt Date: 20080529
  Transmission Date: 20081010
  Serious: Yes (Other)
  Sender: FDA-Public Use
  Company Number: US-PFIZER INC-2008045895

PATIENT
  Sex: Female

DRUGS (17)
  1. LYRICA [Suspect]
     Indication: FIBROMYALGIA
  2. RANITIDINE [Concomitant]
  3. MAXZIDE [Concomitant]
  4. LEXAPRO [Concomitant]
  5. TRAZODONE HCL [Concomitant]
  6. LORAZEPAM [Concomitant]
  7. MORPHINE [Concomitant]
  8. STRATTERA [Concomitant]
  9. CYMBALTA [Concomitant]
  10. MECLIZINE [Concomitant]
  11. DARVOCET [Concomitant]
  12. VICODIN [Concomitant]
  13. ZYPREXA [Concomitant]
  14. OXCARBAZEPINE [Concomitant]
  15. CLARITIN [Concomitant]
  16. ESTRADIOL [Concomitant]
  17. PSEUDOFED [Concomitant]

REACTIONS (4)
  - CONFUSIONAL STATE [None]
  - FLUID RETENTION [None]
  - HEADACHE [None]
  - UPPER LIMB FRACTURE [None]
